FAERS Safety Report 6275964-4 (Version None)
Quarter: 2009Q3

REPORT INFORMATION
  Report Type: 
  Country: None (occurrence: None)
  Receive Date: 20090720
  Receipt Date: 20090701
  Transmission Date: 20100115
  Serious: Yes (Hospitalization)
  Sender: FDA-Public Use
  Company Number: 2009AL000345

PATIENT
  Age: 64 Year
  Sex: Female

DRUGS (9)
  1. DIGOXIN [Suspect]
     Indication: HEART RATE IRREGULAR
     Dosage: 0.25MG, DAILY, PO
     Route: 048
  2. PREDNISONE TAB [Concomitant]
  3. WARFARIN SODIUM [Concomitant]
  4. METOPROLOL TARTRATE [Concomitant]
  5. PROTONIX [Concomitant]
  6. PLAQUENIL [Concomitant]
  7. TOPROL-XL [Concomitant]
  8. CALCIUM [Concomitant]
  9. CELLCEPT [Concomitant]

REACTIONS (19)
  - ATRIAL FIBRILLATION [None]
  - CHEST PAIN [None]
  - COLD SWEAT [None]
  - COUGH [None]
  - FALL [None]
  - HEADACHE [None]
  - HEART RATE IRREGULAR [None]
  - HYPOAESTHESIA [None]
  - LEUKOCYTOCLASTIC VASCULITIS [None]
  - METAMORPHOPSIA [None]
  - PAIN IN EXTREMITY [None]
  - PALPITATIONS [None]
  - PANCREATITIS [None]
  - PARAESTHESIA [None]
  - THERAPEUTIC AGENT TOXICITY [None]
  - URTICARIA [None]
  - VERTIGO [None]
  - VISUAL IMPAIRMENT [None]
  - WEIGHT DECREASED [None]
